FAERS Safety Report 7035559-1 (Version None)
Quarter: 2010Q4

REPORT INFORMATION
  Report Type: 
  Country: None (occurrence: None)
  Receive Date: 20101008
  Receipt Date: 20100930
  Transmission Date: 20110411
  Serious: Yes (Hospitalization, Other)
  Sender: FDA-Public Use
  Company Number: JP-JNJFOC-20100500056

PATIENT
  Sex: Female
  Weight: 60 kg

DRUGS (13)
  1. DUROTEP MT [Suspect]
     Indication: CANCER PAIN
     Route: 062
  2. DUROTEP MT [Suspect]
     Route: 062
  3. DUROTEP MT [Suspect]
     Route: 062
  4. DUROTEP MT [Suspect]
     Route: 062
  5. MS CONTIN [Suspect]
     Indication: CANCER PAIN
     Route: 048
  6. MS CONTIN [Suspect]
     Route: 048
  7. MS CONTIN [Suspect]
     Route: 048
  8. MS CONTIN [Suspect]
     Route: 048
  9. PACIF [Concomitant]
     Indication: CANCER PAIN
     Route: 048
  10. NAIXAN [Concomitant]
     Route: 048
  11. CYTOTEC [Concomitant]
     Route: 048
  12. GABAPEN [Concomitant]
     Route: 048
  13. ROHYPNOL [Concomitant]
     Route: 048

REACTIONS (3)
  - ALLODYNIA [None]
  - ANALGESIC DRUG LEVEL INCREASED [None]
  - CONSTIPATION [None]
